FAERS Safety Report 5833779-2 (Version None)
Quarter: 2008Q3

REPORT INFORMATION
  Report Type: 
  Country: None (occurrence: None)
  Receive Date: 20080804
  Receipt Date: 20080804
  Transmission Date: 20090109
  Serious: No
  Sender: FDA-Public Use
  Company Number: None

PATIENT
  Age: 47 Year
  Sex: Female
  Weight: 64.4108 kg

DRUGS (2)
  1. PLAVIX [Suspect]
     Indication: CAROTID ARTERY STENOSIS
     Dosage: 75MG DAY PO
     Route: 048
     Dates: start: 20080101, end: 20080301
  2. LIPITOR [Concomitant]

REACTIONS (5)
  - ASTHENIA [None]
  - CHILLS [None]
  - HYPOAESTHESIA [None]
  - PARAESTHESIA [None]
  - SKIN BURNING SENSATION [None]
